FAERS Safety Report 19652013 (Version 1)
Quarter: 2021Q3

REPORT INFORMATION
  Report Type: Spontaneous
  Country: US (occurrence: US)
  Receive Date: 20210803
  Receipt Date: 20210803
  Transmission Date: 20211014
  Serious: No
  Sender: FDA-Public Use
  Company Number: US-GW PHARMA-202107USGW03728

PATIENT

DRUGS (3)
  1. EPIDIOLEX [Suspect]
     Active Substance: CANNABIDIOL
     Indication: LENNOX-GASTAUT SYNDROME
     Dosage: 680 MILLIGRAM, FREQUENCY NOT REPORTED
     Route: 048
     Dates: start: 20210707, end: 202107
  2. EPIDIOLEX [Suspect]
     Active Substance: CANNABIDIOL
     Dosage: DOSE INCREASED
     Route: 048
     Dates: start: 202107
  3. ONFI [Concomitant]
     Active Substance: CLOBAZAM
     Indication: LENNOX-GASTAUT SYNDROME
     Dosage: UNK, DOSE MIGHT BE DECREASED
     Route: 065

REACTIONS (2)
  - Hypersomnia [Unknown]
  - Somnolence [Unknown]

NARRATIVE: CASE EVENT DATE: 202107
